FAERS Safety Report 10513744 (Version 1)
Quarter: 2014Q4

REPORT INFORMATION
  Report Type: Spontaneous
  Country: IT (occurrence: IT)
  Receive Date: 20141013
  Receipt Date: 20141013
  Transmission Date: 20150528
  Serious: Yes (Other)
  Sender: FDA-Public Use
  Company Number: IT-ABBVIE-14P-083-1294463-00

PATIENT
  Age: 18 Year
  Sex: Male

DRUGS (3)
  1. CHLORDESMETHYLDIAZEPAM [Suspect]
     Active Substance: DELORAZEPAM
     Indication: ACUTE PSYCHOSIS
     Route: 048
     Dates: start: 20140916, end: 20140919
  2. INVEGA [Suspect]
     Active Substance: PALIPERIDONE
     Indication: ACUTE PSYCHOSIS
     Route: 048
     Dates: start: 20140916, end: 20140919
  3. DEPAKENE [Suspect]
     Active Substance: VALPROIC ACID
     Indication: ACUTE PSYCHOSIS
     Route: 048
     Dates: start: 20140916, end: 20140919

REACTIONS (2)
  - Dystonia [Recovered/Resolved]
  - Headache [Recovered/Resolved]

NARRATIVE: CASE EVENT DATE: 20140919
